FAERS Safety Report 22006669 (Version 1)
Quarter: 2023Q1

REPORT INFORMATION
  Report Type: Spontaneous
  Country: NO (occurrence: NO)
  Receive Date: 20230217
  Receipt Date: 20230217
  Transmission Date: 20230418
  Serious: Yes (Life-Threatening, Hospitalization, Other)
  Sender: FDA-Public Use
  Company Number: None

PATIENT
  Age: 25 Year
  Sex: Female
  Weight: 58 kg

DRUGS (7)
  1. NEURONTIN [Suspect]
     Active Substance: GABAPENTIN
     Indication: Spinal operation
     Dosage: 300 MG THREE TIMES PER DAY
     Route: 065
     Dates: start: 20220922, end: 20221220
  2. VITAMIN B12 [Concomitant]
     Active Substance: CYANOCOBALAMIN
     Dosage: UNK, QW
     Route: 065
  3. OMEGA-3 ACIDS [Concomitant]
     Active Substance: OMEGA-3 FATTY ACIDS
     Dosage: 100 MILLIGRAM, QW
     Route: 065
  4. MULTI [Concomitant]
     Dosage: UNK, QW
     Route: 065
  5. REMERON [Concomitant]
     Active Substance: MIRTAZAPINE
     Indication: Insomnia
     Dosage: IN THE EVENING, ABOUT 1-2 HOURS BEFORE BEDTIME.
     Route: 065
     Dates: start: 20221028
  6. REMERON [Concomitant]
     Active Substance: MIRTAZAPINE
     Indication: Depression
  7. MAGNESIUM [Concomitant]
     Active Substance: MAGNESIUM
     Dosage: 350 MILLIGRAM, QW
     Route: 065

REACTIONS (8)
  - Suicidal ideation [Recovered/Resolved]
  - Suicidal behaviour [Recovered/Resolved]
  - Decreased interest [Unknown]
  - Depressed mood [Unknown]
  - Anaemia [Unknown]
  - Haemoglobin decreased [Recovering/Resolving]
  - Anorgasmia [Recovering/Resolving]
  - Libido decreased [Recovering/Resolving]

NARRATIVE: CASE EVENT DATE: 20220922
